FAERS Safety Report 5531164-4 (Version None)
Quarter: 2007Q4

REPORT INFORMATION
  Report Type: 
  Country: None (occurrence: None)
  Receive Date: 20071130
  Receipt Date: 20071118
  Transmission Date: 20080405
  Serious: Yes (Other)
  Sender: FDA-Public Use
  Company Number: US-PFIZER INC-2007098945

PATIENT
  Sex: Female
  Weight: 97.727 kg

DRUGS (12)
  1. CHANTIX [Suspect]
     Indication: SMOKING CESSATION THERAPY
     Route: 048
     Dates: start: 20071001, end: 20071119
  2. MORPHINE [Concomitant]
  3. PROPACET 100 [Concomitant]
  4. CELEBREX [Concomitant]
  5. DEPAKOTE [Concomitant]
  6. LEXAPRO [Concomitant]
  7. SEROQUEL [Concomitant]
  8. REMERON [Concomitant]
  9. ACIPHEX [Concomitant]
  10. PREDNISOLONE [Concomitant]
  11. DETROL LA [Concomitant]
  12. OXYCODONE HCL [Concomitant]

REACTIONS (2)
  - DEHYDRATION [None]
  - HYPOTENSION [None]
